FAERS Safety Report 7654177-5 (Version None)
Quarter: 2011Q3

REPORT INFORMATION
  Report Type: 
  Country: None (occurrence: None)
  Receive Date: 20110803
  Receipt Date: 20110802
  Transmission Date: 20111222
  Serious: Yes (Death)
  Sender: FDA-Public Use
  Company Number: PHHY2011IT61401

PATIENT
  Sex: Male

DRUGS (1)
  1. VOLTAREN [Suspect]
     Indication: BACK PAIN
     Dosage: 1 DF, QD (ONE POSOLOGICAL UNIT)
     Route: 054
     Dates: start: 20040621

REACTIONS (3)
  - GASTROINTESTINAL ULCER PERFORATION [None]
  - CARDIAC ARREST [None]
  - HAEMORRHAGE [None]
